FAERS Safety Report 14661397 (Version 7)
Quarter: 2018Q4

REPORT INFORMATION
  Report Type: Report from Study
  Country: GB (occurrence: GB)
  Receive Date: 20180320
  Receipt Date: 20181018
  Transmission Date: 20190204
  Serious: Yes (Hospitalization)
  Sender: FDA-Public Use
  Company Number: GB-LPDUSPRD-20180376

PATIENT
  Age: 81 Year
  Sex: Male
  Weight: 99.6 kg

DRUGS (24)
  1. FERINJECT [Suspect]
     Active Substance: FERRIC CARBOXYMALTOSE
     Dosage: 20 ML
     Route: 042
     Dates: start: 20180216, end: 20180216
  2. DIGOXIN. [Concomitant]
     Active Substance: DIGOXIN
     Dosage: 125 MCG (125 MCG, 1 IN 1 D)
     Route: 048
     Dates: start: 20180321
  3. FUROSEMIDE. [Concomitant]
     Active Substance: FUROSEMIDE
     Dosage: (40 OTHER,1 IN 1 D)
     Route: 048
     Dates: start: 20180227, end: 20180323
  4. MERITONE SHAKE [Concomitant]
     Dosage: UNKNOWN
     Route: 065
  5. SIMVASTATIN. [Concomitant]
     Active Substance: SIMVASTATIN
     Dosage: (40 MG, 1 IN 1 D)
     Route: 048
     Dates: start: 20180220
  6. SALBUTAMOL [Concomitant]
     Active Substance: ALBUTEROL
     Dosage: 15 MG (5 MG, 3 IN 1 D)
     Route: 065
     Dates: start: 20180302, end: 20180303
  7. HEPARIN [Concomitant]
     Active Substance: HEPARIN SODIUM
     Dosage: 500 IU, STAT, ONCE ONLY
     Route: 041
     Dates: start: 20180415, end: 20180415
  8. SALINE [Concomitant]
     Active Substance: SODIUM CHLORIDE
     Dosage: (ML, 4 IN 1 D)
     Route: 065
     Dates: start: 20180301, end: 20180302
  9. APIXABAN [Concomitant]
     Active Substance: APIXABAN
     Dosage: 5 MG (2.5 MG, 2 IN 1 D)
     Route: 048
     Dates: start: 20180416, end: 20180425
  10. CITALOPRAM [Concomitant]
     Active Substance: CITALOPRAM HYDROBROMIDE
     Dosage: 20 MG (20 MG, 1 IN 1 D)
     Route: 048
     Dates: start: 20180220
  11. SALMETEROL [Concomitant]
     Active Substance: SALMETEROL
     Dosage: 2 PUFF (2 IN 1 D)
     Route: 065
     Dates: start: 20180220
  12. BISOPROLOL [Concomitant]
     Active Substance: BISOPROLOL
     Dosage: (10 MG, 2 IN 1 D)
     Route: 048
     Dates: start: 20180220, end: 20180318
  13. HUMULIN M3 [Concomitant]
     Active Substance: INSULIN HUMAN
     Dosage: (30 IU, 1 IN 1 D)
     Route: 058
     Dates: start: 20180220, end: 20180221
  14. ACTRAPID [Concomitant]
     Active Substance: INSULIN HUMAN
     Dosage: (4 IU, PRN (AS NEEDED))
     Route: 058
     Dates: start: 20180221, end: 20180221
  15. MIRTAZEPINE TEVA [Concomitant]
     Active Substance: MIRTAZAPINE
     Dosage: 15 MG (15 MG, 1 IN 1 D)
     Route: 048
     Dates: start: 20180319, end: 20180326
  16. APIXABAN [Concomitant]
     Active Substance: APIXABAN
     Dosage: 10 MG (5 MG,2 IN 1 D)
     Route: 048
     Dates: start: 20180220
  17. HUMULIN L [Concomitant]
     Active Substance: INSULIN HUMAN
     Dosage: (30 IU, MORNING DOSE)
     Route: 058
     Dates: start: 20180309, end: 20180313
  18. METFORMIN [Concomitant]
     Active Substance: METFORMIN HYDROCHLORIDE
     Dosage: (500 MG, 2 IN 1 D)
     Route: 048
     Dates: start: 20180307, end: 20180307
  19. SENNA [Concomitant]
     Active Substance: SENNA LEAF\SENNOSIDES\SENNOSIDES A AND B
     Dosage: 15 MG (15 MG, 1 IN 1 D)
     Route: 048
  20. DOSULEPIN HYDROCHLORIDE [Concomitant]
     Active Substance: DOTHIEPIN HYDROCHLORIDE
     Dosage: 75 MG (75 MG,1 IN 1 D)
     Route: 048
     Dates: start: 20180220, end: 20180313
  21. ALOGLIPTIN. [Concomitant]
     Active Substance: ALOGLIPTIN
     Dosage: 2.5 MG (2.5 MG, 1 IN 1 D)
     Route: 048
     Dates: start: 20180320
  22. EPLERENONE. [Concomitant]
     Active Substance: EPLERENONE
     Dosage: 25 MG (25 MG, 1 IN 1 D)
     Route: 048
  23. BECLOMETHASONE [Concomitant]
     Active Substance: BECLOMETHASONE
     Dosage: 2 PUFF (2 IN 1 D)
     Route: 065
     Dates: start: 20180220
  24. HEPARIN [Concomitant]
     Active Substance: HEPARIN SODIUM
     Dosage: (5000 IU, 2 IN 1 D)
     Route: 058
     Dates: start: 20180220, end: 20180223

REACTIONS (3)
  - Diarrhoea [Recovered/Resolved]
  - Acute kidney injury [Recovered/Resolved]
  - Urinary tract infection [Recovered/Resolved]

NARRATIVE: CASE EVENT DATE: 20180219
